FAERS Safety Report 9813800 (Version 2)
Quarter: 2014Q1

REPORT INFORMATION
  Report Type: Spontaneous
  Country: US (occurrence: US)
  Receive Date: 20140113
  Receipt Date: 20140113
  Transmission Date: 20141002
  Serious: Yes (Hospitalization)
  Sender: FDA-Public Use
  Company Number: US-B.I. PHARMACEUTICALS,INC./RIDGEFIELD-2013-BI-22937BP

PATIENT
  Sex: Male
  Weight: 82.55 kg

DRUGS (1)
  1. PRADAXA [Suspect]
     Dates: start: 20120622, end: 20120704

REACTIONS (3)
  - Ulcer [Unknown]
  - Atrial fibrillation [Unknown]
  - Haemorrhage [Unknown]
